FAERS Safety Report 7231519-6 (Version None)
Quarter: 2011Q1

REPORT INFORMATION
  Report Type: 
  Country: None (occurrence: None)
  Receive Date: 20110118
  Receipt Date: 20110106
  Transmission Date: 20110831
  Serious: Yes (Other)
  Sender: FDA-Public Use
  Company Number: GB-ASTRAZENECA-2011SE00794

PATIENT
  Sex: Female

DRUGS (3)
  1. NEXIUM [Suspect]
     Indication: GASTROOESOPHAGEAL REFLUX DISEASE
     Route: 048
     Dates: start: 20100101
  2. NEXIUM [Suspect]
     Route: 048
     Dates: start: 20100701
  3. OTHER DRUGS [Concomitant]

REACTIONS (2)
  - BLOOD SODIUM DECREASED [None]
  - CONVULSION [None]
